FAERS Safety Report 9401059 (Version 2)
Quarter: 2013Q3

REPORT INFORMATION
  Report Type: Spontaneous
  Country: JP (occurrence: JP)
  Receive Date: 20130715
  Receipt Date: 20130723
  Transmission Date: 20140515
  Serious: Yes (Other)
  Sender: FDA-Public Use
  Company Number: JP-BRISTOL-MYERS SQUIBB COMPANY-19106137

PATIENT
  Age: 67 Year
  Sex: Female

DRUGS (6)
  1. ABILIFY DISCMELT TABS [Suspect]
     Indication: SCHIZOPHRENIA
     Dosage: DOSE INCREASED TO 15MG/DAY.STRENGTH-3MG
     Route: 048
     Dates: start: 20120801
  2. WYPAX [Suspect]
     Dosage: TAB
     Route: 048
  3. DEPAS [Suspect]
     Route: 048
  4. OLMETEC [Suspect]
     Dosage: TABS
     Route: 048
  5. BAYASPIRIN [Suspect]
     Dosage: TAB
     Route: 048
  6. OLANZAPINE [Concomitant]
     Dosage: DECREASED TO 2.5MG

REACTIONS (2)
  - White blood cell count decreased [Unknown]
  - Haemoglobin decreased [Unknown]
